FAERS Safety Report 20566275 (Version 1)
Quarter: 2022Q1

REPORT INFORMATION
  Report Type: Spontaneous
  Country: JP (occurrence: JP)
  Receive Date: 20220308
  Receipt Date: 20220308
  Transmission Date: 20220424
  Serious: Yes (Other)
  Sender: FDA-Public Use
  Company Number: JP-ABBVIE-22K-087-4306576-00

PATIENT
  Age: 40 Year
  Sex: Male

DRUGS (4)
  1. VENCLEXTA [Suspect]
     Active Substance: VENETOCLAX
     Indication: B-cell small lymphocytic lymphoma refractory
     Route: 048
  2. VENCLEXTA [Suspect]
     Active Substance: VENETOCLAX
     Indication: B-cell small lymphocytic lymphoma recurrent
  3. RITUXIMAB [Concomitant]
     Active Substance: RITUXIMAB
     Indication: B-cell small lymphocytic lymphoma refractory
  4. RITUXIMAB [Concomitant]
     Active Substance: RITUXIMAB
     Indication: B-cell small lymphocytic lymphoma recurrent

REACTIONS (1)
  - Progressive multifocal leukoencephalopathy [Unknown]
